FAERS Safety Report 9461580 (Version 2)
Quarter: 2013Q3

REPORT INFORMATION
  Report Type: Spontaneous
  Country: US (occurrence: US)
  Receive Date: 20130816
  Receipt Date: 20130819
  Transmission Date: 20140515
  Serious: Yes (Hospitalization)
  Sender: FDA-Public Use
  Company Number: US-PFIZER INC-2013236694

PATIENT
  Age: 56 Year
  Sex: Male

DRUGS (2)
  1. DILANTIN-125 [Suspect]
     Dosage: UNK
  2. AUBAGIO [Suspect]
     Indication: MULTIPLE SCLEROSIS
     Dosage: 14 MG/DAY
     Route: 048
     Dates: start: 20130226, end: 2013

REACTIONS (7)
  - Convulsion [Recovering/Resolving]
  - Drug level decreased [Recovering/Resolving]
  - Hepatic enzyme abnormal [Recovering/Resolving]
  - Hypoaesthesia [Recovering/Resolving]
  - Balance disorder [Recovering/Resolving]
  - Nausea [Recovering/Resolving]
  - Drug ineffective [Recovering/Resolving]
